FAERS Safety Report 8352305-X (Version None)
Quarter: 2012Q2

REPORT INFORMATION
  Report Type: 
  Country: None (occurrence: None)
  Receive Date: 20120509
  Receipt Date: 20120430
  Transmission Date: 20120825
  Serious: Yes (Other)
  Sender: FDA-Public Use
  Company Number: 65266

PATIENT
  Sex: Female

DRUGS (1)
  1. CEFAZOLIN [Suspect]
     Indication: CAESAREAN SECTION
     Dosage: UNKNOWN
     Dates: start: 20120427

REACTIONS (2)
  - SHOCK [None]
  - MATERNAL EXPOSURE DURING DELIVERY [None]
